FAERS Safety Report 9638750 (Version 2)
Quarter: 2013Q4

REPORT INFORMATION
  Report Type: Spontaneous
  Country: US (occurrence: US)
  Receive Date: 20131022
  Receipt Date: 20131022
  Transmission Date: 20140711
  Serious: No
  Sender: FDA-Public Use
  Company Number: US-BRISTOL-MYERS SQUIBB COMPANY-19216415

PATIENT
  Age: 82 Year
  Sex: Male

DRUGS (3)
  1. ELIQUIS [Suspect]
     Indication: ATRIAL FIBRILLATION
     Dosage: 14 DAYS OF 5 MG SAMPLES
  2. OXYCODONE [Concomitant]
     Indication: PAIN
     Dosage: OXYCODONE 5/325 UNITS NOS
  3. FLUOXETINE [Concomitant]

REACTIONS (3)
  - Arthritis [Unknown]
  - Contusion [Unknown]
  - Dizziness [Unknown]
